FAERS Safety Report 11211188 (Version 1)
Quarter: 2015Q2

REPORT INFORMATION
  Report Type: Spontaneous
  Country: US (occurrence: None)
  Receive Date: 20150619
  Receipt Date: 20150619
  Transmission Date: 20150821
  Serious: Yes (Hospitalization)
  Sender: FDA-Public Use
  Company Number: None

PATIENT
  Age: 79 Year
  Sex: Male

DRUGS (7)
  1. DILTIAZEM [Concomitant]
     Active Substance: DILTIAZEM
  2. WARFARIN [Suspect]
     Active Substance: WARFARIN
     Indication: MYOCARDIAL INFARCTION
     Dosage: CHRONIC 5MG DAILY PO
     Route: 048
  3. ECOTRIN [Suspect]
     Active Substance: ASPIRIN
     Indication: CORONARY ARTERY DISEASE
     Dosage: 81MG X 2 DAILY PO
     Route: 048
  4. TRAMADOL [Concomitant]
     Active Substance: TRAMADOL
  5. ECOTRIN [Suspect]
     Active Substance: ASPIRIN
     Indication: MYOCARDIAL INFARCTION
     Dosage: 81MG X 2 DAILY PO
     Route: 048
  6. PRAVASTATIN [Concomitant]
     Active Substance: PRAVASTATIN\PRAVASTATIN SODIUM
  7. WARFARIN [Suspect]
     Active Substance: WARFARIN
     Indication: CORONARY ARTERY DISEASE
     Dosage: CHRONIC 5MG DAILY PO
     Route: 048

REACTIONS (3)
  - Upper gastrointestinal haemorrhage [None]
  - Gastric mucosa erythema [None]
  - Hiatus hernia [None]

NARRATIVE: CASE EVENT DATE: 20150221
